FAERS Safety Report 9706797 (Version 3)
Quarter: 2014Q1

REPORT INFORMATION
  Report Type: Spontaneous
  Country: GB (occurrence: GB)
  Receive Date: 20131125
  Receipt Date: 20140322
  Transmission Date: 20141002
  Serious: Yes (Hospitalization, Other)
  Sender: FDA-Public Use
  Company Number: PHFR2013GB006595

PATIENT
  Sex: Male

DRUGS (4)
  1. CLOZARIL [Suspect]
     Indication: SCHIZOPHRENIA
     Dosage: UNK
     Route: 048
     Dates: start: 20090213
  2. CLOZARIL [Suspect]
     Dosage: 700 MG, PER DAY
     Route: 048
  3. CLOZARIL [Suspect]
     Dosage: 350 MG, PER DAY
     Route: 048
     Dates: start: 201301
  4. SIMVASTATIN [Suspect]
     Indication: HYPERLIPIDAEMIA
     Dosage: 45 MG,
     Route: 048
     Dates: start: 201212, end: 201312

REACTIONS (5)
  - Lower limb fracture [Recovering/Resolving]
  - Fall [Unknown]
  - Myoclonus [Unknown]
  - Muscle twitching [Unknown]
  - Hyperlipidaemia [Recovering/Resolving]
